FAERS Safety Report 10188751 (Version 1)
Quarter: 2014Q2

REPORT INFORMATION
  Report Type: Spontaneous
  Country: US (occurrence: None)
  Receive Date: 20140521
  Receipt Date: 20140521
  Transmission Date: 20141212
  Serious: Yes (Disabling)
  Sender: FDA-Public Use
  Company Number: None

PATIENT
  Age: 41 Year
  Sex: Female

DRUGS (2)
  1. LEVOFLOXACIN 500 MG [Suspect]
     Indication: SINUSITIS
     Dosage: 1 PILL PER DAY
     Route: 048
  2. FLONASE [Suspect]
     Dosage: 2 SPRAYS
     Route: 055

REACTIONS (21)
  - Pain in extremity [None]
  - Musculoskeletal pain [None]
  - Arthralgia [None]
  - Pain in extremity [None]
  - Myalgia [None]
  - Arthralgia [None]
  - Pain in extremity [None]
  - Arthralgia [None]
  - Arthralgia [None]
  - Ligament pain [None]
  - Arthralgia [None]
  - Joint stiffness [None]
  - Tinnitus [None]
  - Joint crepitation [None]
  - Thirst [None]
  - Anxiety [None]
  - Insomnia [None]
  - Dry eye [None]
  - Blood glucose decreased [None]
  - Temperature intolerance [None]
  - Tremor [None]
